FAERS Safety Report 9218315 (Version 5)
Quarter: 2013Q3

REPORT INFORMATION
  Report Type: Report from Study
  Country: JP (occurrence: JP)
  Receive Date: 20130409
  Receipt Date: 20130711
  Transmission Date: 20140515
  Serious: Yes (Other)
  Sender: FDA-Public Use
  Company Number: JP-BIOGENIDEC-2013BI030130

PATIENT
  Age: 54 Year
  Sex: Female

DRUGS (13)
  1. TYSABRI [Suspect]
     Indication: RELAPSING-REMITTING MULTIPLE SCLEROSIS
     Dates: start: 20120312, end: 20130401
  2. LYRICA [Concomitant]
     Dates: start: 20120720
  3. HALCION [Concomitant]
     Dates: start: 20121026
  4. METHYCOBAL [Concomitant]
     Dates: start: 20121101
  5. SANCOBA [Concomitant]
     Dates: start: 20121115
  6. DIQUAS (DIQUAFOSOL SODIUM) [Concomitant]
     Dates: start: 20121115
  7. IRBETAN (IRBESARTAN) [Concomitant]
     Dates: start: 20121119
  8. BIOFERMIN [Concomitant]
     Dates: start: 20121219
  9. DEPAS [Concomitant]
     Dates: start: 20130305
  10. GOODMIN [Concomitant]
     Dates: start: 20130312
  11. ONON [Concomitant]
     Dates: start: 20130312
  12. CREAM (NOS) [Concomitant]
     Dates: start: 20130320
  13. STEROID (NOS) [Concomitant]
     Dates: start: 20110622

REACTIONS (1)
  - Hypothyroidism [Recovered/Resolved]
